FAERS Safety Report 9859079 (Version 1)
Quarter: 2014Q1

REPORT INFORMATION
  Report Type: Spontaneous
  Country: AT (occurrence: None)
  Receive Date: 20140129
  Receipt Date: 20140129
  Transmission Date: 20141002
  Serious: Yes (Death)
  Sender: FDA-Public Use
  Company Number: 2145306

PATIENT
  Age: 79 Year
  Sex: Female
  Weight: 120 kg

DRUGS (10)
  1. DEXMEDETOMIDINE HYDROCHLORIDE [Suspect]
     Indication: SEDATION
     Dosage: 400 MCG - 4 ML (UNKNOWN), INTRAVENOUS DRIP
     Route: 041
     Dates: start: 20140102, end: 20140104
  2. MOXIFLOXACIN [Concomitant]
  3. PIPERACILLIN/TAZOBACTAM [Concomitant]
  4. CONCOR [Concomitant]
  5. LASIX [Concomitant]
  6. SIMVASTATIN [Concomitant]
  7. MARCUMAR [Concomitant]
  8. ENALAPRIL [Concomitant]
  9. THYREX [Concomitant]
  10. SULTANOL [Concomitant]

REACTIONS (29)
  - Sepsis [None]
  - Multi-organ failure [None]
  - Dyspnoea [None]
  - Aspartate aminotransferase increased [None]
  - Amylase increased [None]
  - Blood urea increased [None]
  - Blood fibrinogen increased [None]
  - Gamma-glutamyltransferase increased [None]
  - Blood glucose increased [None]
  - Red blood cell count increased [None]
  - Platelet count decreased [None]
  - Pulmonary oedema [None]
  - Cardiomegaly [None]
  - Arteriosclerosis [None]
  - Coronary artery stenosis [None]
  - Arteriosclerosis coronary artery [None]
  - Arteriosclerosis [None]
  - Obesity [None]
  - Tracheobronchitis [None]
  - Bronchopneumonia [None]
  - Pulmonary congestion [None]
  - Visceral congestion [None]
  - Pleural effusion [None]
  - Cardiac cirrhosis [None]
  - Pancreatic steatosis [None]
  - Nephroangiosclerosis [None]
  - Renal cyst [None]
  - Haematoma [None]
  - Scar [None]
